FAERS Safety Report 15751553 (Version 1)
Quarter: 2018Q4

REPORT INFORMATION
  Report Type: Spontaneous
  Country: GB (occurrence: GB)
  Receive Date: 20181221
  Receipt Date: 20181221
  Transmission Date: 20190205
  Serious: Yes (Life-Threatening, Hospitalization)
  Sender: FDA-Public Use
  Company Number: GB-FERRINGPH-2018FE07406

PATIENT

DRUGS (6)
  1. SPIRONOLACTONE. [Suspect]
     Active Substance: SPIRONOLACTONE
     Indication: PRODUCT USED FOR UNKNOWN INDICATION
     Dosage: 25 MG, DAILY (EACH MORNING)
     Route: 065
  2. DESMOPRESSIN [Suspect]
     Active Substance: DESMOPRESSIN
     Indication: PRODUCT USED FOR UNKNOWN INDICATION
     Dosage: 200 ?G, DAILY (AT NIGHT)
     Route: 065
  3. FOSTAIR NEXTHALER [Concomitant]
     Dosage: 100MICROGRAMS/DOSE / 6MICROGRAMS
     Route: 055
  4. CHLORPROMAZINE. [Concomitant]
     Active Substance: CHLORPROMAZINE
     Dosage: AT NIGHT. 1 X 100MG TABLET, 1 X 50MG TABLET
     Route: 065
  5. CASSIA [Concomitant]
     Dosage: 15 MG, DAILY (AT NIGHT)
     Route: 065
  6. BRALTUS [Concomitant]
     Dosage: 10 ?G, DAILY
     Route: 055

REACTIONS (2)
  - Angioedema [Recovered/Resolved]
  - Hyponatraemia [Recovered/Resolved]
